FAERS Safety Report 9203359 (Version 1)
Quarter: 2013Q1

REPORT INFORMATION
  Report Type: Spontaneous
  Country: US (occurrence: None)
  Receive Date: 20130327
  Receipt Date: 20130327
  Transmission Date: 20140127
  Serious: Yes (Death)
  Sender: FDA-Public Use
  Company Number: 2013-00634

PATIENT
  Age: 64 Year
  Sex: Female

DRUGS (20)
  1. LAMOTRIGINE [Suspect]
     Indication: PRODUCT USED FOR UNKNOWN INDICATION
  2. VENLAFAXINE [Suspect]
     Indication: PRODUCT USED FOR UNKNOWN INDICATION
  3. ESCITALOPRAM (UNKNOWN) [Suspect]
     Indication: PRODUCT USED FOR UNKNOWN INDICATION
  4. PANTOPRAZOLE [Suspect]
  5. CIPROFLOXACIN [Suspect]
  6. HYDROCHLOROTHIZIDE [Suspect]
     Indication: PRODUCT USED FOR UNKNOWN INDICATION
  7. DESIPRAMINE [Suspect]
     Indication: PRODUCT USED FOR UNKNOWN INDICATION
  8. DILTIAZEM EXTENDED RELEASE [Suspect]
  9. ARMODAFINIL [Suspect]
     Indication: PRODUCT USED FOR UNKNOWN INDICATION
  10. POTASSIUM CHLORIDE [Suspect]
  11. TRIFLUOPERAZINE [Suspect]
     Indication: PRODUCT USED FOR UNKNOWN INDICATION
  12. LANSOPRAZOLE (UNKNOWN) [Suspect]
     Indication: PRODUCT USED FOR UNKNOWN INDICATION
  13. ROSUVASTATIN (UNKNOWN) [Suspect]
     Indication: PRODUCT USED FOR UNKNOWN INDICATION
  14. NAPROXEN (UNKNOWN) [Suspect]
     Indication: PRODUCT USED FOR UNKNOWN INDICATION
  15. NITROFURANTOIN [Suspect]
     Indication: PRODUCT USED FOR UNKNOWN INDICATION
  16. DICLOFENAC (UNKNOWN) [Suspect]
  17. ACETAMINOPHEN/HYDROCODONE [Suspect]
  18. ACETAMIPHEN/PROPOXYPHENE [Suspect]
     Indication: PRODUCT USED FOR UNKNOWN INDICATION
  19. SOLIFENACIN [Suspect]
     Indication: PRODUCT USED FOR UNKNOWN INDICATION
  20. PROGESTIN [Suspect]
     Indication: PRODUCT USED FOR UNKNOWN INDICATION

REACTIONS (1)
  - Suicidal ideation [None]
